FAERS Safety Report 7287321-2 (Version None)
Quarter: 2011Q1

REPORT INFORMATION
  Report Type: 
  Country: None (occurrence: None)
  Receive Date: 20110211
  Receipt Date: 20101220
  Transmission Date: 20110831
  Serious: Yes (Other)
  Sender: FDA-Public Use
  Company Number: US-BAYER-201018551NA

PATIENT
  Sex: Female
  Weight: 112 kg

DRUGS (3)
  1. ACIPHEX [Concomitant]
  2. YASMIN [Suspect]
     Indication: DYSMENORRHOEA
     Route: 048
  3. YAZ [Suspect]
     Indication: DYSMENORRHOEA
     Route: 048

REACTIONS (5)
  - MENORRHAGIA [None]
  - OEDEMA PERIPHERAL [None]
  - THROMBOPHLEBITIS SUPERFICIAL [None]
  - PAIN IN EXTREMITY [None]
  - PAIN [None]
